FAERS Safety Report 6940693-8 (Version None)
Quarter: 2010Q3

REPORT INFORMATION
  Report Type: 
  Country: None (occurrence: None)
  Receive Date: 20100825
  Receipt Date: 20100818
  Transmission Date: 20110219
  Serious: Yes (Other)
  Sender: FDA-Public Use
  Company Number: US-ROCHE-719313

PATIENT
  Sex: Female
  Weight: 61.2 kg

DRUGS (5)
  1. HERCEPTIN [Suspect]
     Indication: BREAST CANCER
     Route: 042
     Dates: start: 20100426, end: 20100728
  2. TAXOTERE [Concomitant]
     Indication: BREAST CANCER
     Route: 065
     Dates: start: 20100517
  3. TAXOTERE [Concomitant]
     Route: 065
     Dates: start: 20100607
  4. TAXOTERE [Concomitant]
     Route: 065
     Dates: start: 20100628
  5. TAXOL [Concomitant]
     Dates: start: 20100426

REACTIONS (1)
  - PERICARDIAL EFFUSION [None]
